FAERS Safety Report 9270293 (Version 3)
Quarter: 2014Q2

REPORT INFORMATION
  Report Type: Report from Study
  Country: US (occurrence: US)
  Receive Date: 20130503
  Receipt Date: 20140421
  Transmission Date: 20141212
  Serious: Yes (Hospitalization)
  Sender: FDA-Public Use
  Company Number: US-009507513-2012SP007777

PATIENT
  Age: 40 Year
  Sex: Female
  Weight: 83.46 kg

DRUGS (6)
  1. BLINDED CORIFOLLITROPIN ALFA [Suspect]
     Indication: INFERTILITY
     Dosage: UNK
     Route: 058
     Dates: start: 20100928, end: 20100928
  2. BLINDED THERAPY [Suspect]
     Indication: INFERTILITY
     Dosage: UNK
     Route: 058
     Dates: start: 20100928, end: 20101004
  3. MK-8328 [Suspect]
     Indication: INFERTILITY
     Dosage: 300 IU, QD X 4
     Route: 058
     Dates: start: 20101005, end: 20101008
  4. VIVELLE-DOT [Concomitant]
     Indication: NUTRITIONAL SUPPLEMENTATION
     Dosage: 0.20 MG, QOD
     Route: 062
     Dates: start: 20101119, end: 20110201
  5. CRINONE 8% [Concomitant]
     Indication: LUTEAL PHASE DEFICIENCY
     Dosage: 90 MG, QAM
     Route: 067
     Dates: start: 20101216, end: 20101223
  6. PROGESTERONE IN OIL [Concomitant]
     Indication: NUTRITIONAL SUPPLEMENTATION
     Dosage: 50 MG, QD
     Route: 030
     Dates: start: 20101223, end: 20110210

REACTIONS (2)
  - Uterine leiomyoma [Recovered/Resolved]
  - Uterine leiomyosarcoma [Recovering/Resolving]
